FAERS Safety Report 8325478-2 (Version None)
Quarter: 2012Q2

REPORT INFORMATION
  Report Type: 
  Country: None (occurrence: None)
  Receive Date: 20120501
  Receipt Date: 20120424
  Transmission Date: 20120825
  Serious: Yes (Other)
  Sender: FDA-Public Use
  Company Number: US-PFIZER INC-2012063020

PATIENT
  Sex: Male
  Weight: 118 kg

DRUGS (5)
  1. LIPITOR [Suspect]
     Indication: BLOOD CHOLESTEROL INCREASED
     Dosage: 10 MG,DAILY
     Route: 048
     Dates: end: 20120201
  2. LIPITOR [Suspect]
     Dosage: 20 MG, DAILY
     Dates: start: 20120201
  3. ALDACTAZIDE [Concomitant]
     Indication: CARDIAC DISORDER
     Dosage: 25 MG,DAILY
  4. ASPIRIN [Concomitant]
     Indication: CARDIAC DISORDER
     Dosage: 325 MG,DAILY
  5. CALAN - SLOW RELEASE [Concomitant]
     Indication: CARDIAC DISORDER
     Dosage: 240 MG,DAILY

REACTIONS (5)
  - BLOOD CHOLESTEROL INCREASED [None]
  - PAIN [None]
  - BLOOD TRIGLYCERIDES INCREASED [None]
  - FATIGUE [None]
  - LETHARGY [None]
